FAERS Safety Report 12758625 (Version 1)
Quarter: 2016Q3

REPORT INFORMATION
  Report Type: Report from Study
  Country: US (occurrence: US)
  Receive Date: 20160919
  Receipt Date: 20160919
  Transmission Date: 20161109
  Serious: Yes (Hospitalization, Other)
  Sender: FDA-Public Use
  Company Number: US-AMGEN-USASL2016125370

PATIENT
  Age: 76 Year
  Sex: Female

DRUGS (1)
  1. ENBREL [Suspect]
     Active Substance: ETANERCEPT
     Indication: RHEUMATOID ARTHRITIS
     Dosage: 50 MG, WEEKLY
     Route: 065

REACTIONS (10)
  - Asthenia [Unknown]
  - Clostridium difficile infection [Unknown]
  - Fall [Unknown]
  - Tendon rupture [Unknown]
  - Treatment failure [Unknown]
  - Nerve compression [Unknown]
  - Abasia [Unknown]
  - Cystitis [Unknown]
  - Limb injury [Unknown]
  - Arthropathy [Unknown]

NARRATIVE: CASE EVENT DATE: 201511
